FAERS Safety Report 6494136-1 (Version None)
Quarter: 2009Q4

REPORT INFORMATION
  Report Type: 
  Country: None (occurrence: None)
  Receive Date: 20091214
  Receipt Date: 20090109
  Transmission Date: 20100525
  Serious: No
  Sender: FDA-Public Use
  Company Number: US-BRISTOL-MYERS SQUIBB COMPANY-14465082

PATIENT
  Age: 44 Year
  Sex: Female

DRUGS (2)
  1. ABILIFY [Suspect]
     Indication: OBSESSIVE-COMPULSIVE DISORDER
     Dosage: INCREASED TO 30MG, DISCONTINUED AND RESTARTED ON 8JAN08
     Dates: start: 20080101
  2. ABILIFY [Suspect]
     Indication: MOOD SWINGS
     Dosage: INCREASED TO 30MG, DISCONTINUED AND RESTARTED ON 8JAN08
     Dates: start: 20080101

REACTIONS (1)
  - LETHARGY [None]
